FAERS Safety Report 6503068-1 (Version None)
Quarter: 2009Q4

REPORT INFORMATION
  Report Type: 
  Country: None (occurrence: None)
  Receive Date: 20091217
  Receipt Date: 20091208
  Transmission Date: 20100525
  Serious: Yes (Hospitalization)
  Sender: FDA-Public Use
  Company Number: RO-ROCHE-673655

PATIENT
  Sex: Male
  Weight: 55 kg

DRUGS (4)
  1. XELODA [Suspect]
     Route: 048
     Dates: start: 20090201, end: 20090701
  2. TROMBOSTOP [Concomitant]
     Dosage: FREQUENCY: Q DAILY.
     Route: 048
     Dates: start: 20081001
  3. OMNIC [Concomitant]
     Indication: BENIGN PROSTATIC HYPERPLASIA
     Dosage: FREQUENCY: Q DAILY
     Route: 048
  4. OXALIPLATIN [Concomitant]
     Dates: start: 20090201, end: 20090301

REACTIONS (5)
  - BALANCE DISORDER [None]
  - DYSPHAGIA [None]
  - PARAPARESIS [None]
  - POLYNEUROPATHY [None]
  - TREMOR [None]
